FAERS Safety Report 6010999-8 (Version None)
Quarter: 2008Q4

REPORT INFORMATION
  Report Type: 
  Country: None (occurrence: None)
  Receive Date: 20081218
  Receipt Date: 20081212
  Transmission Date: 20090506
  Serious: Yes (Life-Threatening)
  Sender: FDA-Public Use
  Company Number: B0550868A

PATIENT
  Age: 61 Year
  Sex: Female

DRUGS (4)
  1. AUGMENTIN '125' [Suspect]
     Indication: UPPER RESPIRATORY TRACT INFLAMMATION
     Dosage: 2G PER DAY
     Route: 048
     Dates: start: 20081113, end: 20081116
  2. LANZUL [Concomitant]
     Dosage: 30MG UNKNOWN
     Route: 048
     Dates: start: 20081117
  3. FLUCONAZOLE [Concomitant]
     Indication: GASTROINTESTINAL DISORDER
     Dosage: 100MG UNKNOWN
     Route: 048
     Dates: start: 20081116
  4. OLFEN [Concomitant]
     Dosage: 150MG UNKNOWN
     Route: 048
     Dates: start: 20081116

REACTIONS (6)
  - ABDOMINAL PAIN [None]
  - DEHYDRATION [None]
  - DIARRHOEA [None]
  - HYPOVOLAEMIC SHOCK [None]
  - SYNCOPE [None]
  - VOMITING [None]
